FAERS Safety Report 4636606-4 (Version None)
Quarter: 2005Q2

REPORT INFORMATION
  Report Type: 
  Country: None (occurrence: None)
  Receive Date: 20050414
  Receipt Date: 20050329
  Transmission Date: 20051028
  Serious: Yes (Hospitalization)
  Sender: FDA-Public Use
  Company Number: 2004-BP-13870BP

PATIENT
  Age: 5 Month
  Sex: Male
  Weight: 6.9 kg

DRUGS (4)
  1. VIRAMUNE [Suspect]
     Indication: PROPHYLAXIS AGAINST HIV INFECTION
     Dosage: (ONCE), PO
     Route: 048
     Dates: start: 20040617, end: 20040617
  2. VIRAMUNE [Suspect]
     Indication: PROPHYLAXIS AGAINST HIV INFECTION
     Dosage: SEE IMAGE, IU+TM
     Dates: start: 20040515, end: 20040617
  3. VIRAMUNE [Suspect]
     Indication: PROPHYLAXIS AGAINST HIV INFECTION
     Dosage: SEE IMAGE, IU+TM
     Dates: start: 20040617, end: 20041201
  4. COMBIVIR [Concomitant]

REACTIONS (5)
  - DEHYDRATION [None]
  - DRUG EXPOSURE DURING PREGNANCY [None]
  - GASTROENTERITIS [None]
  - HAEMOGLOBIN DECREASED [None]
  - NEONATAL DISORDER [None]
